FAERS Safety Report 9531743 (Version 1)
Quarter: 2013Q2

REPORT INFORMATION
  Report Type: Spontaneous
  Country: US (occurrence: None)
  Receive Date: 20130418
  Receipt Date: 20130418
  Transmission Date: 20140414
  Serious: No
  Sender: FDA-Public Use
  Company Number: 2013PROUSA02450

PATIENT
  Age: 82 Year
  Sex: Male
  Weight: 83.2 kg

DRUGS (8)
  1. PROVENGE [Suspect]
     Indication: PROSTATE CANCER METASTATIC
     Dosage: 250 ML, SINGLE, INTRAVENOUS
     Route: 042
     Dates: start: 20121210, end: 20121210
  2. ABIRATERONE (ABIRATERONE ACETATE) [Concomitant]
  3. XGEVA (DENOSUMAB) [Concomitant]
  4. WARFARIN (WARFARIN SODIUM) (TABLET) [Concomitant]
  5. METOPROLOL (METOPROLOL TARTRATE) [Concomitant]
  6. LOSARTAN (LOSARTAN POTASSIUM) [Concomitant]
  7. LIPITOR (ATORVASTATIN CALCIUM) [Concomitant]
  8. PREDNISONE (PREDNISONE) [Concomitant]

REACTIONS (1)
  - Dizziness [None]
